FAERS Safety Report 7953597-9 (Version None)
Quarter: 2011Q4

REPORT INFORMATION
  Report Type: 
  Country: None (occurrence: None)
  Receive Date: 20111202
  Receipt Date: 20111121
  Transmission Date: 20120403
  Serious: Yes (Hospitalization)
  Sender: FDA-Public Use
  Company Number: FR-JNJFOC-20111111281

PATIENT
  Sex: Female
  Weight: 42 kg

DRUGS (11)
  1. AZATHIOPRINE [Concomitant]
  2. REMICADE [Suspect]
     Indication: CROHN'S DISEASE
     Route: 042
     Dates: end: 20100529
  3. REMICADE [Suspect]
     Route: 042
     Dates: start: 20090430
  4. REMICADE [Suspect]
     Route: 042
     Dates: start: 20101123
  5. ANTIBIOTICS [Concomitant]
     Indication: INFLAMMATORY BOWEL DISEASE
  6. CALCIUM CARBONATE [Concomitant]
  7. ENTOCORT EC [Concomitant]
     Indication: CROHN'S DISEASE
     Dates: start: 20101117, end: 20101211
  8. FORTIMEL [Concomitant]
     Indication: MEDICAL DIET
  9. IRON [Concomitant]
     Route: 042
  10. ALUMINUM HYDROXIDE AND MAGNESIUM TRISILICATE [Concomitant]
  11. ENTOCORT EC [Concomitant]
     Dates: start: 20101222

REACTIONS (1)
  - CROHN'S DISEASE [None]
